FAERS Safety Report 8224091-5 (Version None)
Quarter: 2012Q1

REPORT INFORMATION
  Report Type: 
  Country: None (occurrence: None)
  Receive Date: 20120307
  Receipt Date: 20110609
  Transmission Date: 20120608
  Serious: No
  Sender: FDA-Public Use
  Company Number: PHHY2011US12988

PATIENT
  Age: 10 Year
  Sex: Male

DRUGS (5)
  1. AFINITOR [Suspect]
     Indication: TUBEROUS SCLEROSIS
     Dosage: 5 MG THRICE WEEKLY, ORAL
     Route: 048
     Dates: start: 20110203
  2. AFINITOR [Suspect]
     Indication: ASTROCYTOMA
     Dosage: 5 MG THRICE WEEKLY, ORAL
     Route: 048
     Dates: start: 20110203
  3. FOCALNI XR (DEXMETHYLPHENIDATE HYDROCHLORIDE) [Concomitant]
  4. VEMPAT [Concomitant]
  5. SABRIL [Concomitant]

REACTIONS (2)
  - ORAL PAIN [None]
  - MOUTH ULCERATION [None]
